FAERS Safety Report 5362640-5 (Version None)
Quarter: 2007Q2

REPORT INFORMATION
  Report Type: 
  Country: None (occurrence: None)
  Receive Date: 20070619
  Receipt Date: 20070607
  Transmission Date: 20071010
  Serious: Yes (Disabling, Other)
  Sender: FDA-Public Use
  Company Number: IE-PFIZER INC-2007034659

PATIENT
  Sex: Male
  Weight: 57.2 kg

DRUGS (12)
  1. LYRICA [Suspect]
     Indication: PAIN
     Dosage: DAILY DOSE:150MG
     Route: 048
     Dates: start: 20050801, end: 20070501
  2. DEXAMETHASONE 0.5MG TAB [Concomitant]
     Route: 048
  3. LANSOPRAZOLE [Concomitant]
  4. CASODEX [Concomitant]
  5. OXYCONTIN [Concomitant]
  6. LEVAMIN [Concomitant]
  7. DETRUSITOL [Concomitant]
  8. DECAPEPTYL - SLOW RELEASE [Concomitant]
  9. ACTIQ [Concomitant]
  10. AUGMENTIN '125' [Concomitant]
  11. KLACID [Concomitant]
  12. MACRODANTIN [Concomitant]

REACTIONS (5)
  - DELIRIUM [None]
  - NIGHT BLINDNESS [None]
  - OPTIC NEURITIS [None]
  - PAPILLOEDEMA [None]
  - VISION BLURRED [None]
